FAERS Safety Report 9256735 (Version 4)
Quarter: 2013Q3

REPORT INFORMATION
  Report Type: Spontaneous
  Country: US (occurrence: US)
  Receive Date: 20130426
  Receipt Date: 20130702
  Transmission Date: 20140515
  Serious: Yes (Hospitalization, Other)
  Sender: FDA-Public Use
  Company Number: US-009507513-1304USA015224

PATIENT
  Age: 48 Year
  Sex: Female

DRUGS (1)
  1. JANUVIA [Suspect]
     Dosage: 100 MG, DAILY
     Route: 048
     Dates: start: 20130115, end: 20130416

REACTIONS (2)
  - Pancreatic carcinoma [Recovering/Resolving]
  - Gallbladder operation [Recovering/Resolving]
